FAERS Safety Report 18451038 (Version 1)
Quarter: 2020Q4

REPORT INFORMATION
  Report Type: Spontaneous
  Country: US (occurrence: US)
  Receive Date: 20201102
  Receipt Date: 20201102
  Transmission Date: 20210114
  Serious: No
  Sender: FDA-Public Use
  Company Number: US-TEVA-2020-US-1843800

PATIENT

DRUGS (3)
  1. TOLECTIN [Suspect]
     Active Substance: TOLMETIN SODIUM
     Route: 065
  2. SPORANOX [Suspect]
     Active Substance: ITRACONAZOLE
     Route: 065
  3. TOLMETIN [Suspect]
     Active Substance: TOLMETIN
     Route: 065

REACTIONS (1)
  - Drug hypersensitivity [Unknown]
